FAERS Safety Report 17795664 (Version 1)
Quarter: 2020Q2

REPORT INFORMATION
  Report Type: Spontaneous
  Country: FR (occurrence: FR)
  Receive Date: 20200516
  Receipt Date: 20200516
  Transmission Date: 20200714
  Serious: Yes (Hospitalization)
  Sender: FDA-Public Use
  Company Number: FR-ACCORD-181913

PATIENT
  Age: 46 Year
  Sex: Male
  Weight: 90 kg

DRUGS (1)
  1. FLUOROURACILE ACCORD [Suspect]
     Active Substance: FLUOROURACIL
     Indication: CHEMOTHERAPY
     Route: 042
     Dates: start: 20190905, end: 20190905

REACTIONS (2)
  - Hypersensitivity [Recovered/Resolved]
  - Rash [Recovered/Resolved]

NARRATIVE: CASE EVENT DATE: 20190905
